FAERS Safety Report 5644161-5 (Version None)
Quarter: 2008Q1

REPORT INFORMATION
  Report Type: 
  Country: None (occurrence: None)
  Receive Date: 20080227
  Receipt Date: 20080213
  Transmission Date: 20080703
  Serious: Yes (Death)
  Sender: FDA-Public Use
  Company Number: STI-2008-00656

PATIENT

DRUGS (8)
  1. CAPSAICIN (UNSPECIFIED) (CAPSAICIN) (CAPSAICIN) [Suspect]
     Indication: ALLODYNIA
     Dosage: REPEATED APPLICATIONS, TOPICAL
     Route: 061
  2. CAPSAICIN (UNSPECIFIED) (CAPSAICIN) (CAPSAICIN) [Suspect]
     Indication: HYPERAESTHESIA
     Dosage: REPEATED APPLICATIONS, TOPICAL
     Route: 061
  3. CAPSAICIN (UNSPECIFIED) (CAPSAICIN) (CAPSAICIN) [Suspect]
     Indication: METASTATIC PAIN
     Dosage: REPEATED APPLICATIONS, TOPICAL
     Route: 061
  4. OPIOIDS (OPIOIDS) [Concomitant]
  5. ANTIDEPRESSANTS (ANTIDEPRESSANTS) [Concomitant]
  6. ANTICONVULSANTS [Concomitant]
  7. STEROIDS (CORTICOSTEROIDS) [Concomitant]
  8. NSAIDS (NSAID'S) [Concomitant]

REACTIONS (1)
  - THERAPEUTIC RESPONSE UNEXPECTED [None]
